FAERS Safety Report 19807251 (Version 1)
Quarter: 2021Q3

REPORT INFORMATION
  Report Type: Spontaneous
  Country: US (occurrence: US)
  Receive Date: 20210909
  Receipt Date: 20210909
  Transmission Date: 20211014
  Serious: No
  Sender: FDA-Public Use
  Company Number: US-FDC LIMITED-2118168

PATIENT
  Age: 57 Year
  Sex: Male
  Weight: 70.46 kg

DRUGS (3)
  1. CIPROFLOXACIN. [Suspect]
     Active Substance: CIPROFLOXACIN
     Indication: EAR INFECTION
     Route: 001
     Dates: start: 20210828
  2. ROSUVASTATIN. [Concomitant]
     Active Substance: ROSUVASTATIN
     Route: 065
  3. CIPROFLOXACIN. [Concomitant]
     Active Substance: CIPROFLOXACIN
     Route: 065

REACTIONS (2)
  - Product use in unapproved indication [Unknown]
  - Product use issue [Unknown]

NARRATIVE: CASE EVENT DATE: 20210828
